FAERS Safety Report 4672379-7 (Version None)
Quarter: 2005Q2

REPORT INFORMATION
  Report Type: 
  Country: None (occurrence: None)
  Receive Date: 20050520
  Receipt Date: 20050512
  Transmission Date: 20051028
  Serious: Yes (Death, Hospitalization)
  Sender: FDA-Public Use
  Company Number: GBWYE470802MAR05

PATIENT
  Age: 52 Year
  Sex: Female

DRUGS (1)
  1. EFFEXOR XR [Suspect]
     Indication: DEPRESSION
     Dosage: 36 X 150MG CAPSULES TAKEN IN OVERDOSE, ORAL
     Route: 048
     Dates: start: 20041104, end: 20041104

REACTIONS (19)
  - BRAIN HERNIATION [None]
  - BRAIN OEDEMA [None]
  - COMPLETED SUICIDE [None]
  - COMPUTERISED TOMOGRAM ABNORMAL [None]
  - CONTUSION [None]
  - CONVULSION [None]
  - DECEREBRATION [None]
  - EXCORIATION [None]
  - FALL [None]
  - GLASGOW COMA SCALE ABNORMAL [None]
  - HEAD INJURY [None]
  - INTENTIONAL MISUSE [None]
  - LOSS OF EMPLOYMENT [None]
  - MOOD SWINGS [None]
  - NECROSIS [None]
  - NERVOUS SYSTEM DISORDER [None]
  - OVERDOSE [None]
  - SKIN LACERATION [None]
  - SUBDURAL HAEMATOMA [None]
